FAERS Safety Report 9918207 (Version 2)
Quarter: 2016Q1

REPORT INFORMATION
  Report Type: Report from Study
  Country: US (occurrence: US)
  Receive Date: 20140223
  Receipt Date: 20160219
  Transmission Date: 20160526
  Serious: Yes (Other)
  Sender: FDA-Public Use
  Company Number: US-ROCHE-1315252

PATIENT
  Sex: Female
  Weight: 79.45 kg

DRUGS (7)
  1. LISINOPRIL. [Concomitant]
     Active Substance: LISINOPRIL
     Route: 065
     Dates: start: 20160120
  2. QUIXIN [Concomitant]
     Active Substance: LEVOFLOXACIN
     Route: 065
     Dates: start: 20130411
  3. LUCENTIS [Suspect]
     Active Substance: RANIBIZUMAB
     Indication: NEOVASCULAR AGE-RELATED MACULAR DEGENERATION
     Dosage: 3 MONTHS THEN QUARTERLY
     Route: 050
     Dates: start: 20080417
  4. AVASTIN [Suspect]
     Active Substance: BEVACIZUMAB
     Indication: PRODUCT USED FOR UNKNOWN INDICATION
     Route: 042
     Dates: start: 20071101
  5. MYDRIACYL [Concomitant]
     Active Substance: TROPICAMIDE
     Indication: MYDRIASIS
     Dosage: 1PERSENT DROPS
     Route: 065
     Dates: start: 20130411
  6. HYDROCHLOROTHIAZIDE. [Concomitant]
     Active Substance: HYDROCHLOROTHIAZIDE
     Route: 065
     Dates: start: 20130213
  7. VIGAMOX [Concomitant]
     Active Substance: MOXIFLOXACIN HYDROCHLORIDE

REACTIONS (4)
  - Condition aggravated [Unknown]
  - Vision blurred [Unknown]
  - Cystoid macular oedema [Unknown]
  - Vitreous floaters [Unknown]
